FAERS Safety Report 18161436 (Version 1)
Quarter: 2020Q3

REPORT INFORMATION
  Report Type: Spontaneous
  Country: US (occurrence: US)
  Receive Date: 20200817
  Receipt Date: 20200817
  Transmission Date: 20201103
  Serious: Yes (Life-Threatening, Hospitalization)
  Sender: FDA-Public Use
  Company Number: None

PATIENT
  Age: 56 Year
  Sex: Female
  Weight: 77.4 kg

DRUGS (2)
  1. RUXIENCE [Concomitant]
     Active Substance: RITUXIMAB-PVVR
     Dates: start: 20200813
  2. RUXIENCE [Suspect]
     Active Substance: RITUXIMAB-PVVR
     Indication: NON-HODGKIN^S LYMPHOMA
     Dates: start: 20200813, end: 20200813

REACTIONS (4)
  - Nausea [None]
  - Blood pressure increased [None]
  - Hyperhidrosis [None]
  - Dyspnoea [None]

NARRATIVE: CASE EVENT DATE: 20200813
